FAERS Safety Report 4875428-6 (Version None)
Quarter: 2006Q1

REPORT INFORMATION
  Report Type: 
  Country: None (occurrence: None)
  Receive Date: 20060109
  Receipt Date: 20051011
  Transmission Date: 20060701
  Serious: Yes (Hospitalization)
  Sender: FDA-Public Use
  Company Number: US-MERCK-0510USA06649

PATIENT
  Age: 61 Year
  Sex: Male
  Weight: 99 kg

DRUGS (3)
  1. VIOXX [Suspect]
     Indication: BACK PAIN
     Route: 048
     Dates: start: 20000901, end: 20010801
  2. VIOXX [Suspect]
     Indication: PAIN IN EXTREMITY
     Route: 048
     Dates: start: 20000901, end: 20010801
  3. ASPIRIN [Concomitant]
     Route: 065

REACTIONS (10)
  - ABDOMINAL MASS [None]
  - CARDIAC DISORDER [None]
  - CAROTID ARTERY STENOSIS [None]
  - DEEP VEIN THROMBOSIS [None]
  - DYSPNOEA [None]
  - HYPERCOAGULATION [None]
  - HYPERTENSION [None]
  - PLATELET COUNT INCREASED [None]
  - PNEUMONIA [None]
  - RENAL CYST [None]
